FAERS Safety Report 6026363-1 (Version None)
Quarter: 2009Q1

REPORT INFORMATION
  Report Type: 
  Country: None (occurrence: None)
  Receive Date: 20090102
  Receipt Date: 20081219
  Transmission Date: 20090719
  Serious: Yes (Disabling, Other)
  Sender: FDA-Public Use
  Company Number: PHHY2008NL23925

PATIENT
  Sex: Female
  Weight: 64.6 kg

DRUGS (5)
  1. GLEEVEC [Suspect]
     Indication: CHRONIC MYELOID LEUKAEMIA
     Dosage: 400 MG
     Route: 048
     Dates: start: 20080328, end: 20080617
  2. GLEEVEC [Suspect]
     Dosage: 200 MG
     Route: 048
     Dates: start: 20080715, end: 20080902
  3. METOPROLOL [Concomitant]
     Dosage: 200
     Route: 048
  4. ACETYLSALICYLIC ACID SRT [Concomitant]
     Dosage: 80 MG/DAY
     Route: 048
  5. DIOVAN HCT [Concomitant]
     Dosage: 160+12.5 MG/DAY
     Route: 048

REACTIONS (4)
  - ALOPECIA [None]
  - ANGIOPLASTY [None]
  - DIARRHOEA [None]
  - INTERMITTENT CLAUDICATION [None]
